FAERS Safety Report 8578758-X (Version None)
Quarter: 2012Q3

REPORT INFORMATION
  Report Type: 
  Country: None (occurrence: None)
  Receive Date: 20120808
  Receipt Date: 20120730
  Transmission Date: 20120928
  Serious: Yes (Other)
  Sender: FDA-Public Use
  Company Number: US-NOVOPROD-357035

PATIENT
  Age: 22 Year
  Sex: Male
  Weight: 70.295 kg

DRUGS (2)
  1. NORDITROPIN FLEXPRO [Suspect]
     Dosage: UNKNOWN
     Route: 058
     Dates: start: 20110516, end: 20120727
  2. NORDITROPIN FLEXPRO [Suspect]
     Indication: HYPOPITUITARISM
     Dosage: 0.9 MG, DAILY
     Route: 058
     Dates: start: 20101001

REACTIONS (2)
  - PRIMITIVE NEUROECTODERMAL TUMOUR METASTATIC [None]
  - CONDITION AGGRAVATED [None]
